FAERS Safety Report 15767178 (Version 2)
Quarter: 2019Q1

REPORT INFORMATION
  Report Type: Report from Study
  Country: US (occurrence: US)
  Receive Date: 20181227
  Receipt Date: 20190121
  Transmission Date: 20190417
  Serious: Yes (Hospitalization, Other)
  Sender: FDA-Public Use
  Company Number: US-MALLINCKRODT-T201806768

PATIENT
  Sex: Male
  Weight: 118 kg

DRUGS (1)
  1. REPOSITORY CORTICOTROPIN INJECTION [Suspect]
     Active Substance: CORTICOTROPIN
     Indication: NEPHROTIC SYNDROME
     Dosage: 80 UNITS/1 ML, TWO TIMES PER WEEK (WEDNESDAY/SUNDAY)
     Route: 058
     Dates: start: 20181106

REACTIONS (5)
  - Myocardial infarction [Unknown]
  - Weight increased [Unknown]
  - Blood pressure increased [Unknown]
  - Urine output decreased [Unknown]
  - Peripheral swelling [Unknown]
